FAERS Safety Report 7953166-0 (Version None)
Quarter: 2011Q4

REPORT INFORMATION
  Report Type: 
  Country: None (occurrence: None)
  Receive Date: 20111201
  Receipt Date: 20111125
  Transmission Date: 20120403
  Serious: Yes (Life-Threatening, Hospitalization)
  Sender: FDA-Public Use
  Company Number: DE-ROCHE-769878

PATIENT
  Sex: Female

DRUGS (13)
  1. METHOTREXATE [Suspect]
     Indication: FELTY'S SYNDROME
     Route: 058
  2. VOLTAREN [Concomitant]
  3. VOLTAREN [Concomitant]
     Route: 048
  4. METHYLPREDNISOLONE [Concomitant]
  5. MABTHERA [Suspect]
     Indication: RHEUMATOID ARTHRITIS
  6. MABTHERA [Suspect]
     Indication: FELTY'S SYNDROME
     Dosage: CUMULATIVE DOSE OF THE 1ST, 2ND AND 3RD CYCLES: 5000 MG
     Route: 042
     Dates: start: 20060101, end: 20091208
  7. ACTEMRA [Suspect]
     Indication: FELTY'S SYNDROME
     Route: 065
  8. METHOTREXATE [Suspect]
     Route: 058
     Dates: start: 20100625, end: 20100701
  9. PREDNISOLONE [Concomitant]
  10. TORSEMIDE [Concomitant]
  11. METHOTREXATE [Suspect]
     Route: 058
  12. PANTOPRAZOLE [Concomitant]
  13. CALCIUM/VITAMIN D [Concomitant]

REACTIONS (5)
  - STAPHYLOCOCCAL SEPSIS [None]
  - COLITIS ISCHAEMIC [None]
  - RENAL ABSCESS [None]
  - URINARY TRACT INFECTION [None]
  - SPLENIC INFARCTION [None]
